FAERS Safety Report 12154113 (Version 3)
Quarter: 2016Q2

REPORT INFORMATION
  Report Type: Report from Study
  Country: JP (occurrence: JP)
  Receive Date: 20160307
  Receipt Date: 20160412
  Transmission Date: 20160815
  Serious: Yes (Death, Hospitalization, Other)
  Sender: FDA-Public Use
  Company Number: JP-BRISTOL-MYERS SQUIBB COMPANY-BMS-2016-016345

PATIENT
  Age: 76 Year
  Sex: Female
  Weight: 64 kg

DRUGS (6)
  1. GLUCOBAY [Concomitant]
     Active Substance: ACARBOSE
     Indication: DIABETES MELLITUS
     Dosage: 300 MG, QD
     Route: 048
  2. APIXABAN [Suspect]
     Active Substance: APIXABAN
     Indication: THROMBOSIS PROPHYLAXIS
     Dosage: 2.5 MG, BID
     Route: 048
     Dates: start: 20140115, end: 20151222
  3. ZETIA [Concomitant]
     Active Substance: EZETIMIBE
     Indication: DYSLIPIDAEMIA
     Dosage: 10 MG, QD
     Route: 048
  4. FERROMIA [Concomitant]
     Active Substance: FERROUS CITRATE
     Indication: DYSLIPIDAEMIA
     Dosage: 100 MG, QD
     Route: 048
     Dates: start: 20140108
  5. SIGMART [Concomitant]
     Active Substance: NICORANDIL
     Indication: ANGINA PECTORIS
     Dosage: 10 MG, QD
     Route: 048
  6. FASTIC [Concomitant]
     Active Substance: NATEGLINIDE
     Indication: DIABETES MELLITUS
     Dosage: 270 MG, QD
     Route: 048

REACTIONS (3)
  - Weight decreased [Not Recovered/Not Resolved]
  - Pancreatic carcinoma [Fatal]
  - Ascites [Unknown]

NARRATIVE: CASE EVENT DATE: 20140520
